FAERS Safety Report 17003199 (Version 1)
Quarter: 2019Q4

REPORT INFORMATION
  Report Type: Spontaneous
  Country: US (occurrence: US)
  Receive Date: 20191107
  Receipt Date: 20191107
  Transmission Date: 20200122
  Serious: No
  Sender: FDA-Public Use
  Company Number: US-ALLERGAN-1850633US

PATIENT
  Age: 82 Year
  Sex: Female
  Weight: 68.03 kg

DRUGS (4)
  1. REFRESH [Concomitant]
     Active Substance: UNSPECIFIED INGREDIENT
     Indication: DRY EYE
     Dosage: UNK UNK, QID
     Route: 047
  2. CLEANSING TEARS [Concomitant]
     Indication: DRY EYE
     Dosage: UNK UNK, BID
     Route: 047
  3. ALPHAGAN P [Suspect]
     Active Substance: BRIMONIDINE TARTRATE
     Indication: DRY EYE
     Dosage: UNK UNK, BID
     Route: 047
  4. GENTEAL MILD [Concomitant]
     Active Substance: HYPROMELLOSE 2910 (4000 MPA.S)
     Indication: DRY EYE
     Dosage: UNK UNK, BID
     Route: 047

REACTIONS (1)
  - Off label use [Unknown]
